FAERS Safety Report 14300293 (Version 4)
Quarter: 2018Q1

REPORT INFORMATION
  Report Type: Spontaneous
  Country: SK (occurrence: SK)
  Receive Date: 20171219
  Receipt Date: 20180215
  Transmission Date: 20180509
  Serious: Yes (Life-Threatening, Hospitalization)
  Sender: FDA-Public Use
  Company Number: SK-ROCHE-2041942

PATIENT
  Age: 53 Year
  Sex: Female

DRUGS (21)
  1. VORICONAZOLE. [Interacting]
     Active Substance: VORICONAZOLE
     Route: 042
  2. ISONIAZID. [Suspect]
     Active Substance: ISONIAZID
     Indication: PRODUCT USED FOR UNKNOWN INDICATION
     Route: 065
  3. VORICONAZOLE. [Interacting]
     Active Substance: VORICONAZOLE
     Indication: ASPERGILLUS INFECTION
     Route: 042
  4. RIFAMPICIN [Interacting]
     Active Substance: RIFAMPIN
     Indication: TUBERCULOSIS GASTROINTESTINAL
     Route: 065
  5. VORICONAZOLE. [Interacting]
     Active Substance: VORICONAZOLE
     Route: 042
  6. ETHAMBUTOL [Suspect]
     Active Substance: ETHAMBUTOL HYDROCHLORIDE
     Indication: PRODUCT USED FOR UNKNOWN INDICATION
     Route: 065
  7. MYCOPHENOLATE MOFETIL. [Suspect]
     Active Substance: MYCOPHENOLATE MOFETIL
     Indication: IMMUNOSUPPRESSION
     Route: 065
  8. CICLOSPORIN [Interacting]
     Active Substance: CYCLOSPORINE
     Indication: IMMUNOSUPPRESSION
     Dosage: 25 MG-0-50 MG
     Route: 065
  9. METHYLPREDNISOLONE. [Interacting]
     Active Substance: METHYLPREDNISOLONE
     Indication: IMMUNOSUPPRESSION
     Route: 065
  10. ANIDULAFUNGIN [Suspect]
     Active Substance: ANIDULAFUNGIN
     Indication: ASPERGILLUS INFECTION
     Route: 042
  11. PYRAZINAMIDE. [Suspect]
     Active Substance: PYRAZINAMIDE
     Indication: PRODUCT USED FOR UNKNOWN INDICATION
     Route: 065
  12. NOREPINEPHRINE. [Concomitant]
     Active Substance: NOREPINEPHRINE
     Indication: HYPOTENSION
     Dosage: ROUTE: INFUSION
     Route: 050
  13. MYCOPHENOLATE MOFETIL. [Suspect]
     Active Substance: MYCOPHENOLATE MOFETIL
     Route: 065
  14. LINEZOLID. [Concomitant]
     Active Substance: LINEZOLID
     Route: 042
  15. MYCOPHENOLATE MOFETIL. [Suspect]
     Active Substance: MYCOPHENOLATE MOFETIL
     Dosage: 0-1000 MG
     Route: 065
  16. ANIDULAFUNGIN [Suspect]
     Active Substance: ANIDULAFUNGIN
     Route: 042
  17. HYDROCORTISONE. [Concomitant]
     Active Substance: HYDROCORTISONE
     Indication: IMMUNOSUPPRESSANT DRUG THERAPY
     Route: 065
  18. MYCOPHENOLATE MOFETIL. [Suspect]
     Active Substance: MYCOPHENOLATE MOFETIL
     Dosage: 0-1000 MG
     Route: 065
  19. RIFAMPICIN [Interacting]
     Active Substance: RIFAMPIN
     Route: 065
  20. CICLOSPORIN [Interacting]
     Active Substance: CYCLOSPORINE
     Dosage: 25 MG-0-50 MG
     Route: 065
  21. CICLOSPORIN [Interacting]
     Active Substance: CYCLOSPORINE
     Dosage: 0-100 MG
     Route: 065

REACTIONS (39)
  - Metabolic acidosis [Recovered/Resolved]
  - Sepsis [Recovered/Resolved]
  - Cough [Recovered/Resolved]
  - Hyperchloraemia [Recovered/Resolved]
  - Respiratory acidosis [Recovered/Resolved]
  - Multiple organ dysfunction syndrome [Recovered/Resolved]
  - Latent tuberculosis [Unknown]
  - Pleural effusion [Recovered/Resolved]
  - Granuloma [Recovered/Resolved]
  - Aspergillus infection [Unknown]
  - Tuberculosis gastrointestinal [Recovered/Resolved]
  - Septic shock [Recovered/Resolved]
  - Acute kidney injury [Recovered/Resolved]
  - Lymphadenitis [Recovered/Resolved]
  - Abdominal pain [Recovered/Resolved]
  - Pyrexia [Recovered/Resolved]
  - Hyperkalaemia [Recovered/Resolved]
  - Aspartate aminotransferase increased [Recovered/Resolved]
  - Blood urea increased [Recovered/Resolved]
  - Dyspnoea [Recovered/Resolved]
  - C-reactive protein increased [Recovered/Resolved]
  - Pneumonia [Recovered/Resolved]
  - Pericardial effusion [Unknown]
  - Pneumothorax [Unknown]
  - Acute respiratory distress syndrome [Recovered/Resolved]
  - Peritonitis [Recovered/Resolved]
  - Intestinal haemorrhage [Recovered/Resolved]
  - Hypotension [Recovered/Resolved]
  - Mycobacterium test positive [Unknown]
  - Staphylococcal infection [Recovered/Resolved]
  - Procalcitonin increased [Recovered/Resolved]
  - Blood creatinine increased [Recovered/Resolved]
  - Pseudomonas infection [Unknown]
  - Heart rate increased [Recovered/Resolved]
  - Drug interaction [Unknown]
  - Anaemia [Recovered/Resolved]
  - Salpingo-oophoritis [Recovered/Resolved]
  - Enteritis [Recovered/Resolved]
  - Drug level decreased [Recovered/Resolved]
